FAERS Safety Report 17772008 (Version 1)
Quarter: 2020Q2

REPORT INFORMATION
  Report Type: Report from Study
  Country: US (occurrence: US)
  Receive Date: 20200512
  Receipt Date: 20200512
  Transmission Date: 20200714
  Serious: Yes (Other)
  Sender: FDA-Public Use
  Company Number: US-ACTELION-A-NJ2020-204944

PATIENT
  Age: 16 Year
  Sex: Female
  Weight: 39.46 kg

DRUGS (3)
  1. UPTRAVI [Suspect]
     Active Substance: SELEXIPAG
     Indication: PULMONARY ARTERIAL HYPERTENSION
     Dosage: 400 MCG, BID
     Route: 048
  2. TADALAFIL. [Concomitant]
     Active Substance: TADALAFIL
  3. AMBRISENTAN [Concomitant]
     Active Substance: AMBRISENTAN

REACTIONS (7)
  - Loss of consciousness [Recovered/Resolved]
  - Pain in jaw [Not Recovered/Not Resolved]
  - Oxygen saturation decreased [Unknown]
  - Seizure [Unknown]
  - Menorrhagia [Not Recovered/Not Resolved]
  - Head injury [Unknown]
  - Vomiting [Recovered/Resolved]

NARRATIVE: CASE EVENT DATE: 20200417
